FAERS Safety Report 10520066 (Version 5)
Quarter: 2015Q4

REPORT INFORMATION
  Report Type: Spontaneous
  Country: US (occurrence: US)
  Receive Date: 20141015
  Receipt Date: 20151228
  Transmission Date: 20160304
  Serious: Yes (Hospitalization, Other)
  Sender: FDA-Public Use
  Company Number: US-PFIZER INC-2014281797

PATIENT
  Age: 74 Year
  Sex: Female
  Weight: 77.1 kg

DRUGS (18)
  1. WARFARIN [Concomitant]
     Active Substance: WARFARIN
     Indication: ANTICOAGULANT THERAPY
     Dosage: 6 MG, UNK
  2. POTASSIUM CHLORIDE. [Concomitant]
     Active Substance: POTASSIUM CHLORIDE
     Indication: ELECTROLYTE SUBSTITUTION THERAPY
     Dosage: 10 MEQ, 2X/DAY
     Dates: start: 20150508
  3. MELOXICAM. [Concomitant]
     Active Substance: MELOXICAM
     Indication: ARTHRITIS
     Dosage: 50 MG, 1X/DAY
  4. BUMETANIDE. [Concomitant]
     Active Substance: BUMETANIDE
     Indication: DIURETIC THERAPY
     Dosage: 1 MG, 2X/DAY
     Dates: start: 20150508
  5. WARFARIN [Concomitant]
     Active Substance: WARFARIN
     Dosage: 4 MG, 1X/DAY
  6. URSODIOL. [Concomitant]
     Active Substance: URSODIOL
     Indication: BILIARY CIRRHOSIS
     Dosage: 250 MG, 3X/DAY
  7. IRON [Concomitant]
     Active Substance: IRON
     Indication: MINERAL SUPPLEMENTATION
     Dosage: UNK, 3X/DAY(200 (65 FE) MG )
  8. ATENOLOL. [Concomitant]
     Active Substance: ATENOLOL
     Dosage: 50 MG, ONCE A DAY
  9. ANORO ELLIPTA [Concomitant]
     Active Substance: UMECLIDINIUM BROMIDE\VILANTEROL TRIFENATATE
     Indication: CHRONIC OBSTRUCTIVE PULMONARY DISEASE
     Dosage: 1 DF, DAILY(AS DIRECTED)
     Route: 055
  10. ACETAZOLAMIDE. [Concomitant]
     Active Substance: ACETAZOLAMIDE
     Dosage: 250 MG, 1X/DAY
  11. MELOXICAM. [Concomitant]
     Active Substance: MELOXICAM
     Dosage: 15 MG, 1X/DAY
  12. SPIRONOLACTONE. [Concomitant]
     Active Substance: SPIRONOLACTONE
     Dosage: 25 MG, 1X/DAY
  13. LEVOTHYROXINE SODIUM. [Concomitant]
     Active Substance: LEVOTHYROXINE SODIUM
     Dosage: 50 MG ONCE A DAY IN MORNING
  14. OXYGEN. [Concomitant]
     Active Substance: OXYGEN
     Dosage: UNK(AS DIRECTED)
  15. FAMOTIDINE. [Concomitant]
     Active Substance: FAMOTIDINE
     Dosage: 20 MG, 2X/DAY
  16. REVATIO [Suspect]
     Active Substance: SILDENAFIL CITRATE
     Indication: PULMONARY HYPERTENSION
     Dosage: 4 TABLETS OF 20 MG 3 TIMES A DAY
     Route: 048
     Dates: start: 20120202
  17. REVATIO [Suspect]
     Active Substance: SILDENAFIL CITRATE
     Dosage: 20 MG, 3X/DAY
     Route: 048
     Dates: start: 20150508
  18. ATENOLOL. [Concomitant]
     Active Substance: ATENOLOL
     Dosage: 50 MG, 2X/DAY

REACTIONS (30)
  - Atrial fibrillation [Unknown]
  - Hypoxia [Unknown]
  - Product use issue [Unknown]
  - Hypercapnia [Recovered/Resolved]
  - Dizziness [Not Recovered/Not Resolved]
  - Dyspnoea [Unknown]
  - Tricuspid valve incompetence [Unknown]
  - Asthenia [Unknown]
  - Dry mouth [Unknown]
  - Bronchitis [Unknown]
  - Emphysema [Unknown]
  - Breath sounds abnormal [Unknown]
  - Carbon monoxide diffusing capacity decreased [Unknown]
  - Periodic limb movement disorder [Unknown]
  - Dyspnoea exertional [Not Recovered/Not Resolved]
  - Sleep apnoea syndrome [Unknown]
  - Aortic valve sclerosis [Unknown]
  - Mitral valve incompetence [Unknown]
  - Cor pulmonale [Unknown]
  - Interstitial lung disease [Unknown]
  - Cardiomegaly [Unknown]
  - Oropharyngeal pain [Unknown]
  - Chronic obstructive pulmonary disease [Unknown]
  - Spinal osteoarthritis [Unknown]
  - Scoliosis [Unknown]
  - Cardiac failure congestive [Unknown]
  - Obstructive airways disorder [Unknown]
  - Vertebral osteophyte [Unknown]
  - Mitral valve calcification [Unknown]
  - Oedema [Unknown]

NARRATIVE: CASE EVENT DATE: 20120202
